FAERS Safety Report 5579109-5 (Version None)
Quarter: 2007Q4

REPORT INFORMATION
  Report Type: 
  Country: None (occurrence: None)
  Receive Date: 20071228
  Receipt Date: 20071228
  Transmission Date: 20080405
  Serious: Yes (Other)
  Sender: FDA-Public Use
  Company Number: None

PATIENT
  Age: 40 Year
  Sex: Male
  Weight: 78.0187 kg

DRUGS (1)
  1. ALDARA [Suspect]
     Indication: BASAL CELL CARCINOMA
     Dosage: 1 PACKET -0.25 G-   5X/WEEK  TOP
     Route: 061
     Dates: start: 20071211, end: 20071226

REACTIONS (4)
  - ERYTHEMA [None]
  - FATIGUE [None]
  - NIGHT SWEATS [None]
  - SKIN IRRITATION [None]
